FAERS Safety Report 11099197 (Version 1)
Quarter: 2015Q2

REPORT INFORMATION
  Report Type: Spontaneous
  Country: US (occurrence: US)
  Receive Date: 20150508
  Receipt Date: 20150508
  Transmission Date: 20150821
  Serious: Yes (Other)
  Sender: FDA-Public Use
  Company Number: US-BEH-2014040583

PATIENT
  Age: 67 Year
  Sex: Male

DRUGS (4)
  1. ALBUMIN [Suspect]
     Active Substance: ALBUMIN (HUMAN)
     Indication: HEPATORENAL SYNDROME
     Dosage: 6 DAYS
  2. MIDODRINE [Suspect]
     Active Substance: MIDODRINE
     Indication: HEPATORENAL SYNDROME
  3. OCTREOTIDE [Suspect]
     Active Substance: OCTREOTIDE
     Indication: HEPATORENAL SYNDROME
  4. NOREPINEPHRINE [Suspect]
     Active Substance: NOREPINEPHRINE\NOREPINEPHRINE BITARTRATE
     Indication: HEPATORENAL SYNDROME

REACTIONS (2)
  - Renal impairment [Recovered/Resolved]
  - Drug ineffective for unapproved indication [Recovered/Resolved]
